FAERS Safety Report 7084451-5 (Version None)
Quarter: 2010Q4

REPORT INFORMATION
  Report Type: 
  Country: None (occurrence: None)
  Receive Date: 20101104
  Receipt Date: 20101029
  Transmission Date: 20110411
  Serious: Yes (Other)
  Sender: FDA-Public Use
  Company Number: US-PFIZER INC-2010125165

PATIENT
  Sex: Male
  Weight: 86.168 kg

DRUGS (6)
  1. LIPITOR [Suspect]
     Indication: BLOOD CHOLESTEROL INCREASED
     Dosage: 40 MG, 1X/DAY
     Route: 048
  2. IBUPROFEN [Concomitant]
     Indication: INFLAMMATION
     Dosage: 400 MG, 3X/DAY
     Route: 048
  3. SOMA [Concomitant]
     Indication: BACK DISORDER
     Dosage: 350 MG, 4X/DAY
     Route: 048
  4. KLONOPIN [Concomitant]
     Indication: SEDATIVE THERAPY
     Dosage: 1 MG, AS NEEDED
     Route: 048
  5. AMBIEN [Concomitant]
     Indication: SLEEP DISORDER
     Dosage: 10 MG, 1X/DAY
     Route: 048
  6. FINASTERIDE [Concomitant]
     Indication: PROSTATOMEGALY
     Dosage: UNK
     Route: 048
     Dates: end: 20100101

REACTIONS (1)
  - BLOOD TRIGLYCERIDES ABNORMAL [None]
